FAERS Safety Report 6872280-4 (Version None)
Quarter: 2010Q3

REPORT INFORMATION
  Report Type: 
  Country: None (occurrence: None)
  Receive Date: 20100723
  Receipt Date: 20100715
  Transmission Date: 20110219
  Serious: Yes (Hospitalization)
  Sender: FDA-Public Use
  Company Number: JP-ROCHE-716736

PATIENT
  Sex: Male
  Weight: 53.4 kg

DRUGS (15)
  1. TOCILIZUMAB [Suspect]
     Indication: RHEUMATOID ARTHRITIS
     Route: 041
     Dates: start: 20091001, end: 20091001
  2. TOCILIZUMAB [Suspect]
     Route: 041
     Dates: start: 20091029, end: 20091029
  3. TOCILIZUMAB [Suspect]
     Route: 041
     Dates: start: 20091126, end: 20091126
  4. ACTEMRA [Suspect]
     Route: 041
     Dates: start: 20091222, end: 20091222
  5. TOCILIZUMAB [Suspect]
     Route: 041
     Dates: start: 20100121, end: 20100121
  6. TOCILIZUMAB [Suspect]
     Route: 041
     Dates: start: 20100218, end: 20100218
  7. TOCILIZUMAB [Suspect]
     Route: 041
     Dates: start: 20100413, end: 20100413
  8. TOCILIZUMAB [Suspect]
     Route: 041
     Dates: start: 20100511, end: 20100511
  9. TOCILIZUMAB [Suspect]
     Route: 041
     Dates: start: 20100611
  10. METOLATE [Concomitant]
     Route: 048
  11. PREDONINE [Concomitant]
     Route: 048
  12. TAKEPRON [Concomitant]
     Route: 048
  13. FOLIAMIN [Concomitant]
     Route: 048
  14. VOLTAREN [Concomitant]
     Route: 054
  15. BONALON [Concomitant]
     Dosage: NAME RPTD AS ^BONALON 35MG^
     Route: 048

REACTIONS (2)
  - ACUTE SINUSITIS [None]
  - RETINAL DETACHMENT [None]
